FAERS Safety Report 12803686 (Version 1)
Quarter: 2016Q4

REPORT INFORMATION
  Report Type: Spontaneous
  Country: US (occurrence: US)
  Receive Date: 20161003
  Receipt Date: 20161003
  Transmission Date: 20170207
  Serious: Yes (Death, Hospitalization)
  Sender: FDA-Public Use
  Company Number: US-BAYER-2016-142082

PATIENT
  Age: 84 Year
  Sex: Male

DRUGS (4)
  1. XARELTO [Interacting]
     Active Substance: RIVAROXABAN
     Indication: DEEP VEIN THROMBOSIS
  2. ACETYLSALICYLIC ACID({=100 MG) [Suspect]
     Active Substance: ASPIRIN
     Indication: PRODUCT USED FOR UNKNOWN INDICATION
     Dosage: 81 MG, QD
  3. XARELTO [Interacting]
     Active Substance: RIVAROXABAN
     Indication: CEREBROVASCULAR ACCIDENT PROPHYLAXIS
     Dosage: 15 MG, QD
     Route: 048
     Dates: start: 201403, end: 20140716
  4. XARELTO [Interacting]
     Active Substance: RIVAROXABAN
     Indication: ATRIAL FIBRILLATION

REACTIONS (5)
  - Chronic kidney disease [Fatal]
  - Ecchymosis [Unknown]
  - Gastrointestinal haemorrhage [Unknown]
  - Cardiac failure congestive [Fatal]
  - Sinus node dysfunction [Fatal]

NARRATIVE: CASE EVENT DATE: 201407
